FAERS Safety Report 11554609 (Version 1)
Quarter: 2015Q3

REPORT INFORMATION
  Report Type: Spontaneous
  Country: FR (occurrence: FR)
  Receive Date: 20150925
  Receipt Date: 20150925
  Transmission Date: 20151125
  Serious: Yes (Disabling)
  Sender: FDA-Public Use
  Company Number: FR-ABBVIE-15P-056-1410993-00

PATIENT
  Age: 60 Year
  Sex: Female

DRUGS (6)
  1. AMISULPRIDE [Suspect]
     Active Substance: AMISULPRIDE
     Indication: SCHIZOPHRENIA
     Route: 048
     Dates: start: 2005, end: 201206
  2. DEPAKOTE [Suspect]
     Active Substance: DIVALPROEX SODIUM
     Indication: SCHIZOPHRENIA
     Route: 048
     Dates: start: 2005, end: 201206
  3. DEPAKOTE [Suspect]
     Active Substance: DIVALPROEX SODIUM
     Route: 048
     Dates: start: 201308
  4. AMISULPRIDE [Suspect]
     Active Substance: AMISULPRIDE
     Route: 048
     Dates: start: 201212, end: 201305
  5. AMISULPRIDE [Suspect]
     Active Substance: AMISULPRIDE
     Route: 048
     Dates: start: 201308
  6. DEPAKOTE [Suspect]
     Active Substance: DIVALPROEX SODIUM
     Route: 048
     Dates: start: 201212, end: 201305

REACTIONS (3)
  - Product use issue [Unknown]
  - Weight increased [Not Recovered/Not Resolved]
  - Off label use [Unknown]

NARRATIVE: CASE EVENT DATE: 201308
